FAERS Safety Report 10215690 (Version 2)
Quarter: 2014Q3

REPORT INFORMATION
  Report Type: Spontaneous
  Country: CA (occurrence: None)
  Receive Date: 20140508
  Receipt Date: 20140723
  Transmission Date: 20150326
  Serious: Yes (Death, Hospitalization)
  Sender: FDA-Public Use
  Company Number: GTI002276

PATIENT
  Age: 91 Year
  Sex: Male

DRUGS (1)
  1. ALBUMIN [Suspect]
     Active Substance: ALBUMIN (HUMAN)
     Route: 042
     Dates: start: 20131121, end: 20131121

REACTIONS (10)
  - Device occlusion [None]
  - Sepsis [None]
  - Dyspnoea [None]
  - Fall [None]
  - Wheezing [None]
  - Fluid overload [None]
  - Oxygen saturation decreased [None]
  - Haematuria [None]
  - Tachypnoea [None]
  - Pneumonia [None]

NARRATIVE: CASE EVENT DATE: 20131121
